FAERS Safety Report 7526713-0 (Version None)
Quarter: 2011Q2

REPORT INFORMATION
  Report Type: 
  Country: None (occurrence: None)
  Receive Date: 20110606
  Receipt Date: 20110418
  Transmission Date: 20111010
  Serious: Yes (Other)
  Sender: FDA-Public Use
  Company Number: CHPA2011CA07544

PATIENT
  Sex: Female

DRUGS (1)
  1. SLOW FE IRON TABLETS [Suspect]
     Dosage: 2 DF, QD
     Route: 048
     Dates: start: 19500101

REACTIONS (1)
  - HYSTERECTOMY [None]
